FAERS Safety Report 8474664-X (Version None)
Quarter: 2012Q2

REPORT INFORMATION
  Report Type: 
  Country: None (occurrence: None)
  Receive Date: 20120628
  Receipt Date: 20120621
  Transmission Date: 20120825
  Serious: Yes (Death)
  Sender: FDA-Public Use
  Company Number: US-TEVA-340698USA

PATIENT
  Age: 44 Year
  Sex: Female

DRUGS (14)
  1. DURAGESIC-100 [Concomitant]
     Dosage: 100 MCG
  2. TRAMADOL HCL [Concomitant]
     Dosage: 4-5 TIMES PER DAY
  3. CELEBREX [Concomitant]
  4. XANAX [Concomitant]
     Dosage: AS NEEDED
  5. COPAXONE [Suspect]
     Indication: MULTIPLE SCLEROSIS
     Route: 058
     Dates: start: 20060101
  6. FLEXERIL [Concomitant]
  7. LASIX [Concomitant]
  8. INTERFERON BETA-1A [Suspect]
     Dates: start: 20030101
  9. VICODIN [Concomitant]
  10. BACLOFEN [Concomitant]
     Dosage: 10 MILLIGRAM;
  11. AMPYRA [Concomitant]
  12. NATALIZUMAB [Suspect]
  13. OXYBUTYNIN [Concomitant]
     Dosage: 10 MILLIGRAM;
  14. MIRAPEX [Concomitant]

REACTIONS (2)
  - OEDEMA PERIPHERAL [None]
  - COMPLETED SUICIDE [None]
